FAERS Safety Report 12447211 (Version 1)
Quarter: 2016Q2

REPORT INFORMATION
  Report Type: Spontaneous
  Country: US (occurrence: None)
  Receive Date: 20160607
  Receipt Date: 20160607
  Transmission Date: 20160815
  Serious: Yes (Disabling)
  Sender: FDA-Public Use
  Company Number: None

PATIENT
  Age: 57 Year
  Sex: Female
  Weight: 64.86 kg

DRUGS (10)
  1. LIDOCAINE. [Concomitant]
     Active Substance: LIDOCAINE
  2. GABAPENTIN. [Concomitant]
     Active Substance: GABAPENTIN
  3. METHDONE [Concomitant]
  4. TYLENOL [Concomitant]
     Active Substance: ACETAMINOPHEN
  5. VENLAFAXINE [Suspect]
     Active Substance: VENLAFAXINE HYDROCHLORIDE
     Indication: DEPRESSION
     Dosage: 1 PILL PER DAY ONCE DAILY AT BEDTIME ORAL (PILL)
     Route: 048
     Dates: start: 201404, end: 20150223
  6. ESTROVEN [Concomitant]
     Active Substance: DIETARY SUPPLEMENT
  7. VITAMINS [Concomitant]
     Active Substance: VITAMINS
  8. TYLENOL [Concomitant]
     Active Substance: ACETAMINOPHEN
  9. ALLERGY MED [Concomitant]
  10. MELOXICAM. [Concomitant]
     Active Substance: MELOXICAM

REACTIONS (2)
  - Tinnitus [None]
  - Ear discomfort [None]

NARRATIVE: CASE EVENT DATE: 201404
